FAERS Safety Report 15882309 (Version 2)
Quarter: 2019Q1

REPORT INFORMATION
  Report Type: Spontaneous
  Country: JP (occurrence: JP)
  Receive Date: 20190128
  Receipt Date: 20190313
  Transmission Date: 20190417
  Serious: Yes (Hospitalization, Other)
  Sender: FDA-Public Use
  Company Number: JP-UCBSA-2019002216

PATIENT
  Age: 65 Year
  Sex: Male
  Weight: 42 kg

DRUGS (9)
  1. THYRADIN [Concomitant]
     Active Substance: LEVOTHYROXINE
     Indication: HYPOPITUITARISM
  2. FAMOTIDINE. [Concomitant]
     Active Substance: FAMOTIDINE
     Indication: STRESS ULCER
  3. PREDONINE [Concomitant]
     Active Substance: PREDNISOLONE
     Indication: HYPOPITUITARISM
  4. PREDNISOLONE. [Concomitant]
     Active Substance: PREDNISOLONE
     Indication: HYPOPITUITARISM
  5. VIMPAT [Suspect]
     Active Substance: LACOSAMIDE
     Dosage: 100 MG, DAILY
     Route: 048
     Dates: start: 20180926, end: 20181001
  6. DEPAKENE-R [Concomitant]
     Active Substance: VALPROATE SODIUM
     Indication: EPILEPSY
  7. COLCHICINE. [Concomitant]
     Active Substance: COLCHICINE
     Indication: PRODUCT USED FOR UNKNOWN INDICATION
  8. VIMPAT [Suspect]
     Active Substance: LACOSAMIDE
     Indication: PRODUCT USED FOR UNKNOWN INDICATION
     Dosage: UNK, 2X/DAY (BID)
     Route: 048
  9. MEMARY [Concomitant]
     Active Substance: MEMANTINE HYDROCHLORIDE
     Indication: DEMENTIA

REACTIONS (1)
  - White blood cell count decreased [Recovered/Resolved]

NARRATIVE: CASE EVENT DATE: 20180929
